FAERS Safety Report 8019892-2 (Version None)
Quarter: 2012Q1

REPORT INFORMATION
  Report Type: 
  Country: None (occurrence: None)
  Receive Date: 20120103
  Receipt Date: 20111228
  Transmission Date: 20120608
  Serious: Yes (Hospitalization, Other)
  Sender: FDA-Public Use
  Company Number: US-TEVA-313317USA

PATIENT
  Sex: Male

DRUGS (2)
  1. CLARAVIS [Suspect]
     Route: 048
  2. TYLENOL PM                         /01088101/ [Suspect]

REACTIONS (4)
  - SUICIDE ATTEMPT [None]
  - OVERDOSE [None]
  - RASH [None]
  - PRURITUS [None]
